FAERS Safety Report 7357278-4 (Version None)
Quarter: 2011Q1

REPORT INFORMATION
  Report Type: 
  Country: None (occurrence: None)
  Receive Date: 20110308
  Receipt Date: 20110223
  Transmission Date: 20110831
  Serious: Yes (Hospitalization)
  Sender: FDA-Public Use
  Company Number: 028175

PATIENT
  Sex: Male
  Weight: 54 kg

DRUGS (5)
  1. OXYCODONE [Concomitant]
  2. PREDNISONE [Concomitant]
  3. CIMZIA [Suspect]
     Indication: CROHN'S DISEASE
     Dosage: (4 00 MG, 1 DOSE SUBCUTANEOUS)
     Route: 058
     Dates: start: 20100907
  4. FLAGYL [Concomitant]
  5. CIPRO [Concomitant]

REACTIONS (12)
  - AORTIC THROMBOSIS [None]
  - PERIRECTAL ABSCESS [None]
  - ILIAC ARTERY THROMBOSIS [None]
  - HAEMANGIOMA [None]
  - APPENDICITIS [None]
  - INFECTION [None]
  - ARTERIAL THROMBOSIS LIMB [None]
  - ATELECTASIS [None]
  - NEPHROLITHIASIS [None]
  - CROHN'S DISEASE [None]
  - SCAR [None]
  - CONDITION AGGRAVATED [None]
